FAERS Safety Report 19910357 (Version 1)
Quarter: 2021Q4

REPORT INFORMATION
  Report Type: Other
  Country: JP (occurrence: JP)
  Receive Date: 20211004
  Receipt Date: 20211004
  Transmission Date: 20220304
  Serious: Yes (Hospitalization, Other)
  Sender: FDA-Public Use
  Company Number: JP-UMEDICA-000135

PATIENT
  Age: 73 Year
  Sex: Male

DRUGS (1)
  1. OLMESARTAN [Suspect]
     Active Substance: OLMESARTAN
     Indication: Hypertension
     Dosage: 20 MG DAILY

REACTIONS (4)
  - Sprue-like enteropathy [Recovered/Resolved]
  - Colitis microscopic [Recovered/Resolved]
  - Hypotension [Unknown]
  - Anaemia [Unknown]
